FAERS Safety Report 19394125 (Version 2)
Quarter: 2021Q2

REPORT INFORMATION
  Report Type: Report from Study
  Country: CA (occurrence: CA)
  Receive Date: 20210609
  Receipt Date: 20210628
  Transmission Date: 20210717
  Serious: Yes (Other)
  Sender: FDA-Public Use
  Company Number: NVSC2021CA121458

PATIENT
  Sex: Female

DRUGS (1)
  1. PIQRAY [Suspect]
     Active Substance: ALPELISIB
     Indication: BREAST CANCER METASTATIC
     Dosage: UNK
     Route: 048
     Dates: start: 20210520

REACTIONS (5)
  - Blood glucose increased [Unknown]
  - Diabetes mellitus [Unknown]
  - Diarrhoea [Unknown]
  - Headache [Unknown]
  - Hyperglycaemia [Unknown]
